FAERS Safety Report 22517371 (Version 1)
Quarter: 2023Q2

REPORT INFORMATION
  Report Type: Spontaneous
  Country: ES (occurrence: ES)
  Receive Date: 20230603
  Receipt Date: 20230603
  Transmission Date: 20230721
  Serious: Yes (Other)
  Sender: FDA-Public Use
  Company Number: ES-AEMPS-1373237

PATIENT
  Age: 68 Year
  Sex: Male

DRUGS (9)
  1. GABAPENTIN [Interacting]
     Active Substance: GABAPENTIN
     Indication: Product used for unknown indication
     Dosage: 400 MILLIGRAM, 3 TIMES A DAY
     Route: 048
     Dates: start: 20221004
  2. MIRTAZAPINE [Interacting]
     Active Substance: MIRTAZAPINE
     Indication: Insomnia
     Dosage: 30 MILLIGRAM, ONCE A DAY
     Route: 048
     Dates: start: 20221004, end: 20230509
  3. QUETIAPINE [Interacting]
     Active Substance: QUETIAPINE
     Indication: Impulse-control disorder
     Dosage: 600 MILLIGRAM, ONCE A DAY
     Route: 048
     Dates: start: 20221004, end: 20230509
  4. CLOMETHIAZOLE [Interacting]
     Active Substance: CLOMETHIAZOLE
     Indication: Behaviour disorder
     Dosage: 768 MILLIGRAM, ONCE A DAY
     Route: 048
     Dates: start: 20221004, end: 20230509
  5. LORAZEPAM [Interacting]
     Active Substance: LORAZEPAM
     Indication: Behaviour disorder
     Dosage: 5 MILLIGRAM, ONCE A DAY
     Route: 048
     Dates: start: 20221004
  6. DULOXETINE HYDROCHLORIDE [Interacting]
     Active Substance: DULOXETINE HYDROCHLORIDE
     Indication: Mixed anxiety and depressive disorder
     Dosage: 60 MILLIGRAM, ONCE A DAY
     Route: 048
     Dates: start: 20221004, end: 20230509
  7. CYTISINICLINE [Interacting]
     Active Substance: CYTISINICLINE
     Indication: Tobacco abuse
     Dosage: UNK
     Route: 048
     Dates: start: 20230506, end: 20230509
  8. ALPRAZOLAM [Interacting]
     Active Substance: ALPRAZOLAM
     Indication: Behaviour disorder
     Dosage: 1.5 MILLIGRAM, ONCE A DAY
     Route: 048
     Dates: start: 20221004, end: 20230509
  9. TRYPTIZOL [Interacting]
     Active Substance: AMITRIPTYLINE HYDROCHLORIDE
     Indication: Behaviour disorder
     Dosage: 25 MILLIGRAM, ONCE A DAY
     Route: 048
     Dates: start: 20221004, end: 20230509

REACTIONS (3)
  - Asthenia [Recovered/Resolved]
  - Somnolence [Recovered/Resolved]
  - Depressed level of consciousness [Recovered/Resolved]

NARRATIVE: CASE EVENT DATE: 20230507
